FAERS Safety Report 24208789 (Version 1)
Quarter: 2024Q3

REPORT INFORMATION
  Report Type: Spontaneous
  Country: US (occurrence: None)
  Receive Date: 20240813
  Receipt Date: 20240813
  Transmission Date: 20241017
  Serious: No
  Sender: Public
  Company Number: None

PATIENT
  Age: 65 Year
  Sex: Male

DRUGS (11)
  1. AMBRISENTAN [Suspect]
     Active Substance: AMBRISENTAN
     Dosage: FREQUENCY : DAILY;?
     Route: 048
  2. COLCHICINE [Concomitant]
  3. DIGOXIN [Concomitant]
  4. ELIQUIS [Concomitant]
     Active Substance: APIXABAN
  5. FARXIGA [Concomitant]
     Active Substance: DAPAGLIFLOZIN PROPANEDIOL
  6. HYDROCODONE-IBUPROFEN [Concomitant]
  7. MAGNESIUM [Concomitant]
  8. METOLAZONE [Concomitant]
  9. PRILOSEC OTC [Concomitant]
     Active Substance: OMEPRAZOLE MAGNESIUM
  10. QC Famotidine Acid Reducer [Concomitant]
  11. SILDENAFIL CITRATE [Concomitant]
     Active Substance: SILDENAFIL CITRATE

REACTIONS (1)
  - Haemorrhage [None]

NARRATIVE: CASE EVENT DATE: 20240812
